FAERS Safety Report 5371931-3 (Version None)
Quarter: 2007Q2

REPORT INFORMATION
  Report Type: 
  Country: None (occurrence: None)
  Receive Date: 20070625
  Receipt Date: 20070615
  Transmission Date: 20071010
  Serious: Yes (Other)
  Sender: FDA-Public Use
  Company Number: 2007US001413

PATIENT
  Age: 40 Year
  Sex: Female

DRUGS (1)
  1. PROGRAF [Suspect]
     Indication: LIVER TRANSPLANT REJECTION

REACTIONS (3)
  - BILIARY CIRRHOSIS PRIMARY [None]
  - HEPATIC FIBROSIS [None]
  - PRURITUS [None]
